FAERS Safety Report 11568662 (Version 2)
Quarter: 2015Q4

REPORT INFORMATION
  Report Type: Spontaneous
  Country: US (occurrence: US)
  Receive Date: 20150929
  Receipt Date: 20151002
  Transmission Date: 20160304
  Serious: Yes (Other)
  Sender: FDA-Public Use
  Company Number: US-ROCHE-ITM201504IM013822

PATIENT
  Sex: Female

DRUGS (2)
  1. ESBRIET [Suspect]
     Active Substance: PIRFENIDONE
     Route: 048
     Dates: start: 20150331
  2. ESBRIET [Suspect]
     Active Substance: PIRFENIDONE
     Indication: IDIOPATHIC PULMONARY FIBROSIS
     Route: 048
     Dates: start: 20150226

REACTIONS (6)
  - Hepatotoxicity [Unknown]
  - Liver function test abnormal [Unknown]
  - Feeding disorder [Unknown]
  - Nausea [Unknown]
  - Headache [Unknown]
  - Abdominal pain upper [Unknown]
